FAERS Safety Report 8357816-9 (Version None)
Quarter: 2012Q2

REPORT INFORMATION
  Report Type: 
  Country: None (occurrence: None)
  Receive Date: 20120514
  Receipt Date: 20110523
  Transmission Date: 20120825
  Serious: Yes (Hospitalization)
  Sender: FDA-Public Use
  Company Number: US-ALEXION-A201100189

PATIENT
  Sex: Male

DRUGS (15)
  1. NEXIUM [Concomitant]
     Dosage: 40 MG, QD
     Route: 048
  2. VITAMIN B6 [Concomitant]
     Dosage: 1 TAB, QD
     Route: 048
  3. VITAMIN B COMPLEX CAP [Concomitant]
     Dosage: 1 TAB, QD
     Route: 048
  4. COUMADIN [Concomitant]
     Dosage: 7.5 MG, QD
     Route: 048
  5. FLOMAX [Concomitant]
     Dosage: 0.4 MG, QD
     Route: 048
  6. SOLIRIS [Suspect]
     Indication: PAROXYSMAL NOCTURNAL HAEMOGLOBINURIA
     Dosage: 900 MG, Q2W
     Route: 042
     Dates: start: 20101101
  7. FOLIC ACID W/VITAMIN B12 [Concomitant]
     Dosage: 1 TAB, QD
     Route: 048
  8. CIPROFLOXACIN HCL [Concomitant]
     Dosage: 500 MG, QD IF FEVER }100
  9. PROSCAR [Concomitant]
     Dosage: 5 MG, QD
     Route: 048
  10. SYNTHROID [Concomitant]
     Dosage: 75 UG, QD
     Route: 048
  11. METOPROLOL TARTRATE [Concomitant]
     Dosage: ON HOLD FOR NOW
  12. MULTIVITAMIN AND MINERAL [Concomitant]
     Dosage: 1 TAB, QD
     Route: 048
  13. SENNA-MINT WAF [Concomitant]
     Dosage: 60 MG, QD
  14. DECITABINE [Suspect]
     Indication: CHRONIC MYELOMONOCYTIC LEUKAEMIA
     Dosage: UNK
     Dates: start: 20101001
  15. HYDREA [Concomitant]
     Dosage: 500 MG, QD
     Route: 048

REACTIONS (4)
  - EATING DISORDER [None]
  - FATIGUE [None]
  - FULL BLOOD COUNT DECREASED [None]
  - PYREXIA [None]
